FAERS Safety Report 10513949 (Version 1)
Quarter: 2014Q4

REPORT INFORMATION
  Report Type: Report from Study
  Country: US (occurrence: US)
  Receive Date: 20141013
  Receipt Date: 20141013
  Transmission Date: 20150528
  Serious: No
  Sender: FDA-Public Use
  Company Number: US-VERTEX PHARMACEUTICALS-2014-004183

PATIENT
  Sex: Male

DRUGS (1)
  1. IVACAFTOR [Suspect]
     Active Substance: IVACAFTOR
     Indication: CYSTIC FIBROSIS
     Dosage: 150 MG, Q 12 HRS
     Route: 065
     Dates: start: 20120216

REACTIONS (4)
  - Intervertebral disc protrusion [Not Recovered/Not Resolved]
  - Nephrolithiasis [Unknown]
  - Sinusitis [Unknown]
  - Conjunctivitis [Not Recovered/Not Resolved]
